FAERS Safety Report 11840329 (Version 1)
Quarter: 2015Q4

REPORT INFORMATION
  Report Type: Spontaneous
  Country: US (occurrence: None)
  Receive Date: 20151215
  Receipt Date: 20151215
  Transmission Date: 20160305
  Serious: Yes (Hospitalization)
  Sender: FDA-Public Use
  Company Number: None

PATIENT
  Age: 92 Year
  Sex: Female
  Weight: 59.42 kg

DRUGS (1)
  1. TRANSDERM SCOP [Suspect]
     Active Substance: SCOPOLAMINE
     Indication: NAUSEA
     Dosage: EVERY 72 HOURS?BEHIND THE EAR
     Dates: start: 20151120, end: 20151212

REACTIONS (2)
  - Hallucination [None]
  - Tremor [None]

NARRATIVE: CASE EVENT DATE: 20151210
